FAERS Safety Report 20986813 (Version 1)
Quarter: 2022Q2

REPORT INFORMATION
  Report Type: Spontaneous
  Country: CN (occurrence: CN)
  Receive Date: 20220621
  Receipt Date: 20220621
  Transmission Date: 20220720
  Serious: Yes (Death, Other)
  Sender: FDA-Public Use
  Company Number: CN-AMGEN-CHNSP2022103626

PATIENT
  Age: 58 Year
  Sex: Female

DRUGS (5)
  1. FILGRASTIM [Suspect]
     Active Substance: FILGRASTIM
     Indication: Prophylaxis
     Dosage: UNK
     Route: 065
  2. EPIRUBICIN [Concomitant]
     Active Substance: EPIRUBICIN
     Dosage: UNK
  3. CYCLOPHOSPHAMIDE [Concomitant]
     Active Substance: CYCLOPHOSPHAMIDE
     Dosage: UNK
  4. DOCETAXEL [Concomitant]
     Active Substance: DOCETAXEL
     Dosage: UNK
  5. CYTARABINE [Concomitant]
     Active Substance: CYTARABINE
     Dosage: UNK

REACTIONS (1)
  - Disease progression [Fatal]
